FAERS Safety Report 5919096-0 (Version None)
Quarter: 2008Q4

REPORT INFORMATION
  Report Type: 
  Country: None (occurrence: None)
  Receive Date: 20081014
  Receipt Date: 20081014
  Transmission Date: 20090506
  Serious: Yes (Life-Threatening)
  Sender: FDA-Public Use
  Company Number: None

PATIENT
  Age: 63 Year
  Sex: Male
  Weight: 78.7 kg

DRUGS (2)
  1. AMITRIPTYLINE HCL [Suspect]
     Indication: NEURALGIA
     Dosage: 50 MG EVERY DAY PO
     Route: 048
     Dates: start: 20070104, end: 20080908
  2. AMIODARONE HCL [Suspect]
     Indication: ATRIAL FIBRILLATION
     Dosage: 400 MG PO
     Route: 048
     Dates: start: 20080905, end: 20080908

REACTIONS (10)
  - ATRIAL FIBRILLATION [None]
  - BUNDLE BRANCH BLOCK RIGHT [None]
  - CARDIO-RESPIRATORY ARREST [None]
  - ELECTROCARDIOGRAM Q WAVE ABNORMAL [None]
  - ELECTROCARDIOGRAM QT PROLONGED [None]
  - FALL [None]
  - PROCEDURAL HYPOTENSION [None]
  - TORSADE DE POINTES [None]
  - UNRESPONSIVE TO STIMULI [None]
  - VENTRICULAR TACHYCARDIA [None]
